FAERS Safety Report 23169546 (Version 1)
Quarter: 2023Q4

REPORT INFORMATION
  Report Type: Spontaneous
  Country: US (occurrence: US)
  Receive Date: 20231110
  Receipt Date: 20231110
  Transmission Date: 20240110
  Serious: No
  Sender: FDA-Public Use
  Company Number: US-009507513-2310USA010089

PATIENT
  Sex: Female

DRUGS (1)
  1. EMEND [Suspect]
     Active Substance: APREPITANT
     Indication: Cyclic vomiting syndrome
     Dosage: 80 MG/ DAILY, PRODUCT QUANTITY: 1
     Route: 048
     Dates: start: 202307, end: 20230918

REACTIONS (9)
  - Nausea [Not Recovered/Not Resolved]
  - Intentional product misuse [Unknown]
  - Product prescribing issue [Unknown]
  - Product use in unapproved indication [Unknown]
  - Insurance issue [Unknown]
  - Product physical issue [Unknown]
  - Product blister packaging issue [Unknown]
  - Product use complaint [Unknown]
  - Product dose omission issue [Unknown]

NARRATIVE: CASE EVENT DATE: 20230101
